FAERS Safety Report 4682267-8 (Version None)
Quarter: 2005Q2

REPORT INFORMATION
  Report Type: 
  Country: None (occurrence: None)
  Receive Date: 20050606
  Receipt Date: 20041220
  Transmission Date: 20051028
  Serious: Yes (Other)
  Sender: FDA-Public Use
  Company Number: PHEH2004US13544

PATIENT
  Age: 89 Year
  Sex: Female

DRUGS (2)
  1. CELEBREX [Suspect]
  2. AREDIA [Suspect]
     Indication: OSTEOPOROSIS
     Dosage: 30MG OVER 2HRS IN 250CCNS
     Route: 042
     Dates: start: 20040503, end: 20041101

REACTIONS (20)
  - ANGIOPATHY [None]
  - BLINDNESS UNILATERAL [None]
  - ERYTHEMA [None]
  - INJECTION SITE PAIN [None]
  - INJECTION SITE REACTION [None]
  - OEDEMA PERIPHERAL [None]
  - OSTEOPOROSIS [None]
  - PAIN [None]
  - PAIN IN EXTREMITY [None]
  - POOR VENOUS ACCESS [None]
  - RASH [None]
  - RASH MACULAR [None]
  - RASH PRURITIC [None]
  - RASH PUSTULAR [None]
  - READING DISORDER [None]
  - SKIN BURNING SENSATION [None]
  - SPEECH DISORDER [None]
  - SWOLLEN TONGUE [None]
  - VISUAL DISTURBANCE [None]
  - VISUAL FIELD DEFECT [None]
